FAERS Safety Report 9477332 (Version 1)
Quarter: 2013Q3

REPORT INFORMATION
  Report Type: Report from Study
  Country: CN (occurrence: CN)
  Receive Date: 20130826
  Receipt Date: 20130826
  Transmission Date: 20140515
  Serious: Yes (Death, Life-Threatening, Hospitalization, Disabling, Other)
  Sender: FDA-Public Use
  Company Number: CN-BAXTER-2013BAX032878

PATIENT
  Age: 55 Year
  Sex: Female
  Weight: 69 kg

DRUGS (8)
  1. PERITONEAL DIALYSIS SOLUTION (LACTATE- G 1.5%) [Suspect]
     Indication: PERITONEAL DIALYSIS
     Route: 033
  2. INSULINUM [Concomitant]
     Indication: DIABETES MELLITUS
     Route: 065
     Dates: start: 20120216, end: 20130810
  3. NIFEREX [Concomitant]
     Indication: NEPHROGENIC ANAEMIA
     Route: 048
     Dates: start: 20120216, end: 20130810
  4. FOLATE [Concomitant]
     Indication: NEPHROGENIC ANAEMIA
     Route: 048
     Dates: start: 20120216, end: 20130810
  5. EPO [Concomitant]
     Indication: RENAL HYPERTENSION
     Dates: start: 20120216, end: 20130810
  6. DIOVAN [Concomitant]
     Indication: RENAL HYPERTENSION
     Route: 048
     Dates: start: 20120216, end: 20130810
  7. DIOVAN [Concomitant]
     Route: 048
     Dates: start: 20120216
  8. AMLODIPINE [Concomitant]
     Indication: RENAL HYPERTENSION
     Route: 048
     Dates: start: 20120216, end: 20130810

REACTIONS (1)
  - Ventricular fibrillation [Fatal]
